FAERS Safety Report 8545433 (Version 3)
Quarter: 2012Q4

REPORT INFORMATION
  Report Type: 
  Country: US (occurrence: US)
  Receive Date: 20120503
  Receipt Date: 20121024
  Transmission Date: 20130627
  Serious: Yes (Other)
  Sender: FDA-Public Use
  Company Number: US-ASTRAZENECA-2012SE26531

PATIENT
  Age: 74 Year
  Sex: Male
  Weight: 59 kg

DRUGS (16)
  1. PULMICORT FLEXHALER [Suspect]
     Indication: EMPHYSEMA
     Dosage: 180MCG 1 PUFF TWICE DAILY
     Route: 055
     Dates: start: 20120423, end: 20120424
  2. PULMICORT FLEXHALER [Suspect]
     Indication: CHRONIC OBSTRUCTIVE PULMONARY DISEASE
     Dosage: 180MCG 1 PUFF TWICE DAILY
     Route: 055
     Dates: start: 20120423, end: 20120424
  3. SYMBICORT [Suspect]
     Indication: CHRONIC OBSTRUCTIVE PULMONARY DISEASE
     Dosage: 160/4.5 MCG, TWO PUFFS, TWO TIMES A DAY
     Route: 055
     Dates: start: 20120824
  4. NEXIUM [Suspect]
     Route: 048
  5. LISINOPRIL [Suspect]
     Indication: BLOOD PRESSURE ABNORMAL
     Route: 048
  6. ALBUTEROL [Concomitant]
  7. THYROID MEDICINES [Concomitant]
  8. ISOSORBIDE [Concomitant]
     Indication: BLOOD PRESSURE ABNORMAL
     Route: 048
  9. DILTIAZEM [Concomitant]
     Indication: BLOOD PRESSURE ABNORMAL
     Route: 048
  10. ASPIRIN [Concomitant]
     Indication: CARDIAC DISORDER
     Route: 048
  11. BACLOFEN [Concomitant]
     Indication: MUSCLE SPASMS
     Route: 048
  12. NASONEX [Concomitant]
     Route: 045
  13. SYNTHROID [Concomitant]
     Route: 048
  14. VICODIN [Concomitant]
     Route: 048
  15. MULTI-VITAMIN [Concomitant]
     Dosage: DAILY
  16. NITRO-GLYCERIN [Concomitant]
     Indication: CARDIAC DISORDER
     Dosage: PRN
     Route: 048

REACTIONS (11)
  - Colon cancer [Unknown]
  - Bladder dilatation [Unknown]
  - Diverticulitis [Unknown]
  - Eye irritation [Unknown]
  - Dysgeusia [Unknown]
  - Dizziness [Unknown]
  - Muscle spasms [Not Recovered/Not Resolved]
  - Oropharyngeal pain [Unknown]
  - Candidiasis [Unknown]
  - Off label use [Unknown]
  - Drug dose omission [Recovered/Resolved]
